FAERS Safety Report 10412895 (Version 2)
Quarter: 2014Q3

REPORT INFORMATION
  Report Type: Spontaneous
  Country: US (occurrence: US)
  Receive Date: 20140827
  Receipt Date: 20140827
  Transmission Date: 20150326
  Serious: Yes (Hospitalization, Disabling, Other)
  Sender: FDA-Public Use
  Company Number: US-009507513-2010SP042477

PATIENT
  Sex: Female
  Weight: 103.42 kg

DRUGS (10)
  1. NUVARING [Suspect]
     Active Substance: ETHINYL ESTRADIOL\ETONOGESTREL
     Dosage: UNK
     Dates: end: 200512
  2. HYDROCHLOROTHIAZIDE. [Concomitant]
     Active Substance: HYDROCHLOROTHIAZIDE
     Dosage: 25 MG, UNK
  3. NUVARING [Suspect]
     Active Substance: ETHINYL ESTRADIOL\ETONOGESTREL
     Dates: start: 200706, end: 200708
  4. NUVARING [Suspect]
     Active Substance: ETHINYL ESTRADIOL\ETONOGESTREL
     Dates: start: 200710
  5. ECOTRIN [Concomitant]
     Active Substance: ASPIRIN
     Dosage: 81 MG, UNK
  6. NUVARING [Suspect]
     Active Substance: ETHINYL ESTRADIOL\ETONOGESTREL
     Dosage: UNK
     Dates: end: 200603
  7. METFORMIN [Concomitant]
     Active Substance: METFORMIN HYDROCHLORIDE
     Indication: POLYCYSTIC OVARIES
     Dosage: 850 MG, QPM
  8. NUVARING [Suspect]
     Active Substance: ETHINYL ESTRADIOL\ETONOGESTREL
     Indication: MENSTRUAL CYCLE MANAGEMENT
     Dosage: UNK
     Dates: start: 2003, end: 20080707
  9. [COMPOSITION UNSPECIFIED] [Concomitant]
     Active Substance: UNSPECIFIED INGREDIENT
     Indication: NUTRITIONAL SUPPLEMENTATION
     Dates: start: 200801, end: 200806
  10. K-DUR [Concomitant]
     Active Substance: POTASSIUM CHLORIDE
     Indication: MINERAL SUPPLEMENTATION
     Dosage: 20 MG, UNK

REACTIONS (14)
  - Cyst [Unknown]
  - Deep vein thrombosis [Not Recovered/Not Resolved]
  - Off label use [Unknown]
  - Pulmonary embolism [Unknown]
  - Polycystic ovaries [Not Recovered/Not Resolved]
  - Menstrual disorder [Unknown]
  - Hypertension [Unknown]
  - Amenorrhoea [Unknown]
  - Pulmonary hypertension [Not Recovered/Not Resolved]
  - Diabetes mellitus [Not Recovered/Not Resolved]
  - Breast enlargement [Unknown]
  - Ovarian cyst [Unknown]
  - Weight increased [Unknown]
  - Menorrhagia [Unknown]

NARRATIVE: CASE EVENT DATE: 20050404
